FAERS Safety Report 19227319 (Version 1)
Quarter: 2021Q2

REPORT INFORMATION
  Report Type: Report from Study
  Country: NL (occurrence: NL)
  Receive Date: 20210507
  Receipt Date: 20210507
  Transmission Date: 20210717
  Serious: Yes (Other)
  Sender: FDA-Public Use
  Company Number: NL-AMGEN-NLDNI2021063120

PATIENT
  Age: 79 Year
  Sex: Female

DRUGS (1)
  1. ROMOSOZUMAB [Suspect]
     Active Substance: ROMOSOZUMAB
     Indication: OSTEOPOROSIS
     Dosage: 210 MILLIGRAM, QMO
     Route: 065
     Dates: start: 20210318, end: 20210318

REACTIONS (8)
  - Muscle spasms [Recovered/Resolved]
  - SARS-CoV-2 test negative [Unknown]
  - Paraesthesia [Recovered/Resolved]
  - Cystitis noninfective [Recovered/Resolved]
  - Laryngitis [Recovered/Resolved]
  - Influenza [Not Recovered/Not Resolved]
  - Lymphadenopathy [Recovered/Resolved]
  - Ear infection [Recovered/Resolved]

NARRATIVE: CASE EVENT DATE: 202103
